FAERS Safety Report 8276774-9 (Version None)
Quarter: 2012Q2

REPORT INFORMATION
  Report Type: 
  Country: None (occurrence: None)
  Receive Date: 20120412
  Receipt Date: 20120330
  Transmission Date: 20120825
  Serious: Yes (Hospitalization, Other)
  Sender: FDA-Public Use
  Company Number: FR-PFIZER INC-2012089163

PATIENT
  Age: 62 Year
  Sex: Male

DRUGS (7)
  1. ROCEPHIN [Concomitant]
     Indication: PNEUMONIA KLEBSIELLA
  2. ZANTAC [Suspect]
     Dosage: 150 MG, TWICE A DAY
     Route: 048
     Dates: start: 20120119, end: 20120210
  3. ATORVASTATIN [Concomitant]
     Dosage: UNK
     Dates: end: 20120110
  4. CLAFORAN [Suspect]
     Indication: STAPHYLOCOCCAL SEPSIS
     Dosage: 1 G, 3 TIMES A DAY
     Route: 042
     Dates: start: 20120130, end: 20120210
  5. RAMIPRIL [Suspect]
     Dosage: 5 MG (1 UNIT);TWICE A DAY
     Route: 048
     Dates: start: 20120112, end: 20120210
  6. FOSFOCINE [Suspect]
     Indication: STAPHYLOCOCCAL SEPSIS
     Dosage: 4 G, 3 TIMES A DAY
     Route: 042
     Dates: start: 20120130, end: 20120210
  7. ROCEPHIN [Concomitant]
     Indication: URINARY TRACT INFECTION
     Dosage: UNK
     Dates: start: 20111201, end: 20111201

REACTIONS (2)
  - NEUTROPENIA [None]
  - STAPHYLOCOCCAL SEPSIS [None]
